FAERS Safety Report 4361170-7 (Version None)
Quarter: 2004Q2

REPORT INFORMATION
  Report Type: 
  Country: None (occurrence: None)
  Receive Date: 20040507
  Receipt Date: 20030314
  Transmission Date: 20050107
  Serious: Yes (Hospitalization)
  Sender: FDA-Public Use
  Company Number: PHEH2003US02318

PATIENT
  Age: 78 Year
  Sex: Female
  Weight: 114.3 kg

DRUGS (5)
  1. TEGRETOL [Suspect]
     Indication: CONVULSION
     Dosage: 200 MG, TID, ORAL
     Route: 048
  2. PHENOBARBITAL TAB [Concomitant]
  3. ENALAPRIL MALEATE [Concomitant]
  4. INSULIN NOVO (INSULIN) [Concomitant]
  5. MULTIVITAMIN ^LAPPE^ (VITAMINS NOS) [Concomitant]

REACTIONS (1)
  - MENTAL STATUS CHANGES [None]
